FAERS Safety Report 23302926 (Version 1)
Quarter: 2023Q4

REPORT INFORMATION
  Report Type: Spontaneous
  Country: US (occurrence: US)
  Receive Date: 20231215
  Receipt Date: 20231215
  Transmission Date: 20240109
  Serious: No
  Sender: FDA-Public Use
  Company Number: US-PRIMUS-2023-US-013026

PATIENT
  Age: 75 Year
  Sex: Female

DRUGS (1)
  1. IMPOYZ [Suspect]
     Active Substance: CLOBETASOL PROPIONATE
     Indication: Xerosis
     Dosage: APPLY TO AFFECTED AREAS TWICE A DAY FOR 2 WEEKS THEN TWICE A DAY NO MORE THAN 3 DAYS A WEEK AS NEEDE
     Route: 061

REACTIONS (3)
  - Drug ineffective for unapproved indication [Unknown]
  - Peripheral swelling [Unknown]
  - Condition aggravated [Unknown]
